FAERS Safety Report 24577012 (Version 1)
Quarter: 2024Q4

REPORT INFORMATION
  Report Type: Spontaneous
  Country: CN (occurrence: CN)
  Receive Date: 20241104
  Receipt Date: 20241104
  Transmission Date: 20250115
  Serious: Yes (Other)
  Sender: PFIZER
  Company Number: CN-PFIZER INC-PV202400138546

PATIENT
  Age: 73 Year
  Sex: Male
  Weight: 55 kg

DRUGS (3)
  1. IRINOTECAN HYDROCHLORIDE [Suspect]
     Active Substance: IRINOTECAN HYDROCHLORIDE
     Indication: Chemotherapy
     Dosage: 100 MG, D3, IVGTT, Q3W
     Route: 041
     Dates: start: 202109
  2. TORIPALIMAB [Suspect]
     Active Substance: TORIPALIMAB
     Indication: Chemotherapy
     Dosage: 240 MG, D1, IVGTT
     Route: 041
     Dates: start: 202109
  3. CETUXIMAB [Suspect]
     Active Substance: CETUXIMAB
     Indication: Chemotherapy
     Dosage: 600 MG, D2, IVGTT
     Route: 041
     Dates: start: 202109

REACTIONS (2)
  - Immune-mediated myocarditis [Recovered/Resolved]
  - Myocardial injury [Recovered/Resolved]

NARRATIVE: CASE EVENT DATE: 20210101
